FAERS Safety Report 13577481 (Version 2)
Quarter: 2017Q3

REPORT INFORMATION
  Report Type: Spontaneous
  Country: US (occurrence: US)
  Receive Date: 20170524
  Receipt Date: 20170725
  Transmission Date: 20171127
  Serious: No
  Sender: FDA-Public Use
  Company Number: US-HORIZON-MIG-0010-2017

PATIENT
  Age: 59 Year
  Sex: Female
  Weight: 45 kg

DRUGS (6)
  1. VALIUM [Concomitant]
     Active Substance: DIAZEPAM
     Dosage: 2.5 MG DAILY AT BEDTIME
     Route: 048
  2. MIGERGOT [Suspect]
     Active Substance: CAFFEINE\ERGOTAMINE TARTRATE
     Indication: MIGRAINE
     Dosage: 2/100 MG RECTAL PRO RE NATA
     Route: 054
  3. TIZANIDINE. [Concomitant]
     Active Substance: TIZANIDINE
     Dosage: 1 MG PRN
     Route: 048
     Dates: start: 2014
  4. PROPRANOLOL [Concomitant]
     Active Substance: PROPRANOLOL HYDROCHLORIDE
     Indication: MIGRAINE
     Dosage: 10 MG BID SINCE AGE 22
     Route: 048
  5. LEVOTHYROXINE. [Concomitant]
     Active Substance: LEVOTHYROXINE
     Indication: HYPOTHYROIDISM
     Dosage: 25 ?G DAILY
     Route: 048
  6. AMITRIPTYLINE [Concomitant]
     Active Substance: AMITRIPTYLINE
     Indication: SLEEP DISORDER
     Dosage: 50 MG DAILY AT BEDTIME
     Route: 048

REACTIONS (4)
  - Headache [Unknown]
  - Nausea [Unknown]
  - Fatigue [Unknown]
  - Drug ineffective [Unknown]
